FAERS Safety Report 8190483-6 (Version None)
Quarter: 2012Q1

REPORT INFORMATION
  Report Type: 
  Country: None (occurrence: None)
  Receive Date: 20120307
  Receipt Date: 20120228
  Transmission Date: 20120608
  Serious: Yes (Hospitalization, Other)
  Sender: FDA-Public Use
  Company Number: PHHY2012JP017087

PATIENT
  Age: 72 Year
  Sex: Male

DRUGS (4)
  1. TEGAFUR URACIL [Interacting]
     Indication: ADJUVANT THERAPY
  2. ASPIRIN [Concomitant]
     Indication: PERCUTANEOUS CORONARY INTERVENTION
     Dosage: 200 MG, QD
  3. WARFARIN SODIUM [Suspect]
     Indication: MYOCARDIAL INFARCTION
     Dosage: 2 MG, QD
  4. TICLOPIDINE HYDROCHLORIDE [Concomitant]
     Indication: PERCUTANEOUS CORONARY INTERVENTION
     Dosage: 200 MG, QD

REACTIONS (9)
  - LUNG INFILTRATION [None]
  - DYSPNOEA [None]
  - HAEMOPTYSIS [None]
  - COUGH [None]
  - PULMONARY ALVEOLAR HAEMORRHAGE [None]
  - MELAENA [None]
  - PURPURA [None]
  - INTERNATIONAL NORMALISED RATIO INCREASED [None]
  - DRUG INTERACTION [None]
